FAERS Safety Report 6268780-0 (Version None)
Quarter: 2009Q3

REPORT INFORMATION
  Report Type: 
  Country: None (occurrence: None)
  Receive Date: 20090715
  Receipt Date: 20090709
  Transmission Date: 20100115
  Serious: Yes (Death)
  Sender: FDA-Public Use
  Company Number: US-GILEAD-2009-0023007

PATIENT
  Sex: Male
  Weight: 78.088 kg

DRUGS (16)
  1. LETAIRIS [Suspect]
     Indication: PULMONARY ARTERIAL HYPERTENSION
     Route: 048
     Dates: start: 20081128
  2. OXYGEN [Concomitant]
  3. LASIX [Concomitant]
  4. ALDACTONE [Concomitant]
  5. DIOVAN [Concomitant]
  6. METOLAZONE [Concomitant]
  7. ALBUTEROL [Concomitant]
  8. PREDNISONE TAB [Concomitant]
  9. PLAVIX [Concomitant]
  10. HUMALOG [Concomitant]
  11. LANTUS [Concomitant]
  12. LEVOXYL [Concomitant]
  13. VICODIN [Concomitant]
  14. PAXIL [Concomitant]
  15. ASPIRIN [Concomitant]
  16. PRILOSEC [Concomitant]

REACTIONS (1)
  - DEATH [None]
